FAERS Safety Report 7950535-X (Version None)
Quarter: 2011Q4

REPORT INFORMATION
  Report Type: 
  Country: None (occurrence: None)
  Receive Date: 20111130
  Receipt Date: 20111122
  Transmission Date: 20120403
  Serious: Yes (Other)
  Sender: FDA-Public Use
  Company Number: PHHY2011GB102272

PATIENT
  Age: 6 Month
  Sex: Male
  Weight: 7 kg

DRUGS (12)
  1. FUROSEMIDE [Concomitant]
     Dosage: 7 MG, UNK
     Route: 042
     Dates: start: 20111109
  2. L-CARNITINE [Concomitant]
     Dosage: 350 MG, UNK
  3. FENTANYL-100 [Concomitant]
     Route: 042
  4. MILRINONE [Concomitant]
     Route: 042
  5. ALBUTEROL SULFATE AUTOHALER [Concomitant]
     Dosage: 2.5 MG, PRN
  6. POTASSIUM CHLORIDE [Concomitant]
     Dosage: 3.5 MMOL, PRN
  7. ASPIRIN [Concomitant]
     Indication: CARDIOMYOPATHY
     Dosage: 37.5 MG, UNK
  8. VANCOMYCIN [Suspect]
     Indication: BACTERIAL INFECTION
     Dosage: 105 MG/DAY
     Route: 042
     Dates: start: 20111110, end: 20111110
  9. CEFOTAXIME [Concomitant]
     Dosage: 350 MG, UNK
     Route: 042
     Dates: start: 20111108
  10. CHLORAL HYDRATE [Concomitant]
     Indication: SEDATION
     Dosage: 175 MG, UNK
     Dates: start: 20111110
  11. MIDAZOLAM [Concomitant]
  12. PARACETAMOL [Concomitant]
     Indication: PYREXIA
     Dosage: 100 MG, UNK
     Dates: start: 20111110

REACTIONS (2)
  - ERYTHEMA [None]
  - ASPIRATION [None]
